FAERS Safety Report 5706781-9 (Version None)
Quarter: 2008Q2

REPORT INFORMATION
  Report Type: 
  Country: None (occurrence: None)
  Receive Date: 20080415
  Receipt Date: 20080415
  Transmission Date: 20081010
  Serious: Yes (Other)
  Sender: FDA-Public Use
  Company Number: None

PATIENT
  Age: 55 Year
  Sex: Female
  Weight: 52.1637 kg

DRUGS (1)
  1. AVELOX [Suspect]
     Indication: SINUSITIS
     Dosage: ONE PILL ONCE DAILY PO
     Route: 048
     Dates: start: 20080403, end: 20080410

REACTIONS (5)
  - DIZZINESS [None]
  - DRUG TOXICITY [None]
  - MALAISE [None]
  - MYALGIA [None]
  - TREMOR [None]
